FAERS Safety Report 6971924-6 (Version None)
Quarter: 2010Q3

REPORT INFORMATION
  Report Type: 
  Country: None (occurrence: None)
  Receive Date: 20100908
  Receipt Date: 20100827
  Transmission Date: 20110219
  Serious: Yes (Hospitalization)
  Sender: FDA-Public Use
  Company Number: JP-SANOFI-AVENTIS-2010SA039740

PATIENT
  Age: 80 Year
  Sex: Female

DRUGS (15)
  1. AMARYL [Suspect]
     Indication: TYPE 2 DIABETES MELLITUS
     Route: 048
     Dates: start: 20020304, end: 20100724
  2. AMOBAN [Suspect]
     Indication: INSOMNIA
     Route: 048
     Dates: start: 20100708, end: 20100708
  3. AMOBAN [Suspect]
     Route: 048
  4. ADALAT CC [Concomitant]
     Indication: HYPERTENSION
     Route: 048
     Dates: start: 20011020, end: 20100724
  5. DIOVAN [Concomitant]
     Indication: HYPERTENSION
     Route: 048
     Dates: start: 20071121, end: 20100724
  6. FERROMIA [Concomitant]
     Route: 048
     Dates: start: 20100707, end: 20100724
  7. TORASEMIDE [Concomitant]
     Indication: OEDEMA
     Route: 048
     Dates: start: 20040517, end: 20100724
  8. ZANTAC [Concomitant]
     Indication: GASTRITIS
     Route: 048
     Dates: start: 20040602, end: 20100724
  9. NITOROL [Concomitant]
     Indication: ANGINA PECTORIS
     Route: 048
     Dates: start: 20020228, end: 20100724
  10. DEPAS [Concomitant]
     Indication: INSOMNIA
     Route: 048
     Dates: start: 20100706, end: 20100724
  11. GASCON [Concomitant]
     Route: 048
     Dates: start: 20031105, end: 20100724
  12. CALONAL [Concomitant]
     Indication: PAIN
     Route: 048
     Dates: start: 20061129, end: 20100724
  13. POLARAMINE [Concomitant]
     Indication: NASAL CONGESTION
     Route: 048
     Dates: start: 20041110, end: 20100724
  14. PANTOSIN [Concomitant]
     Route: 048
     Dates: start: 20051104, end: 20100724
  15. MAGNESIUM OXIDE [Concomitant]
     Route: 048
     Dates: start: 20051104, end: 20100724

REACTIONS (2)
  - DEPRESSED LEVEL OF CONSCIOUSNESS [None]
  - OVERDOSE [None]
